FAERS Safety Report 11575375 (Version 1)
Quarter: 2015Q3

REPORT INFORMATION
  Report Type: Spontaneous
  Country: US (occurrence: None)
  Receive Date: 20150929
  Receipt Date: 20150929
  Transmission Date: 20151125
  Serious: No
  Sender: FDA-Public Use
  Company Number: None

PATIENT
  Age: 36 Year
  Sex: Female

DRUGS (1)
  1. NEXAVAR [Suspect]
     Active Substance: SORAFENIB
     Indication: MALIGNANT CONNECTIVE TISSUE NEOPLASM
     Route: 048
     Dates: start: 20150226

REACTIONS (6)
  - Neuralgia [None]
  - Oropharyngeal pain [None]
  - Exercise tolerance decreased [None]
  - Fatigue [None]
  - Pain in extremity [None]
  - Cardiovascular disorder [None]

NARRATIVE: CASE EVENT DATE: 20150909
